FAERS Safety Report 19431888 (Version 2)
Quarter: 2021Q2

REPORT INFORMATION
  Report Type: Spontaneous
  Country: US (occurrence: US)
  Receive Date: 20210618
  Receipt Date: 20210624
  Transmission Date: 20210717
  Serious: No
  Sender: FDA-Public Use
  Company Number: US-MTPC-MTDA2021-0014932

PATIENT

DRUGS (1)
  1. RADICAVA [Suspect]
     Active Substance: EDARAVONE
     Indication: AMYOTROPHIC LATERAL SCLEROSIS
     Dosage: 60 MILLIGRAM PER SCHEDULE
     Route: 042

REACTIONS (3)
  - Fall [Unknown]
  - General physical health deterioration [Unknown]
  - Muscular weakness [Unknown]
